FAERS Safety Report 20058189 (Version 3)
Quarter: 2022Q1

REPORT INFORMATION
  Report Type: Spontaneous
  Country: CA (occurrence: CA)
  Receive Date: 20211111
  Receipt Date: 20220222
  Transmission Date: 20220423
  Serious: Yes (Other)
  Sender: FDA-Public Use
  Company Number: CA-PFIZER INC-202101467163

PATIENT
  Age: 35 Year
  Sex: Male

DRUGS (5)
  1. XELJANZ [Suspect]
     Active Substance: TOFACITINIB CITRATE
     Indication: Colitis ulcerative
     Dosage: 10 MG, TWICE A DAY (INDUCTION DOSE: 10MG TWICE DAILY FOR 8 WEEKS)
     Route: 048
     Dates: start: 20210728, end: 20210927
  2. XELJANZ [Suspect]
     Active Substance: TOFACITINIB CITRATE
     Dosage: 5 MG, 2X/DAY MAINTENANCE DOSE
     Route: 048
     Dates: start: 20210928, end: 2021
  3. XELJANZ [Suspect]
     Active Substance: TOFACITINIB CITRATE
     Dosage: 10 MG, 2X/DAY MAINTENANCE DOSE
     Route: 048
     Dates: start: 2021
  4. PREDNISONE [Concomitant]
     Active Substance: PREDNISONE
     Dosage: 1 DF IN DECREASING DOSE, FOR 8 WEEKS
     Route: 065
     Dates: start: 20210630
  5. AMINOSALICYLIC ACID [Concomitant]
     Active Substance: AMINOSALICYLIC ACID
     Dosage: 1 DF
     Route: 054

REACTIONS (4)
  - Haematochezia [Recovering/Resolving]
  - Therapeutic product effect incomplete [Unknown]
  - Abdominal pain [Recovered/Resolved]
  - Gastrointestinal disorder [Unknown]

NARRATIVE: CASE EVENT DATE: 20210101
